FAERS Safety Report 8397575-7 (Version None)
Quarter: 2012Q2

REPORT INFORMATION
  Report Type: 
  Country: None (occurrence: None)
  Receive Date: 20120531
  Receipt Date: 20120521
  Transmission Date: 20120825
  Serious: Yes (Hospitalization)
  Sender: FDA-Public Use
  Company Number: US-SANOFI-AVENTIS-2012SA032725

PATIENT
  Age: 84 Year
  Sex: Female
  Weight: 77.11 kg

DRUGS (12)
  1. LEVOTHYROXINE SODIUM [Concomitant]
     Dosage: 1 TAB
     Dates: start: 20110316
  2. SIMVASTATIN [Concomitant]
     Dosage: 1 TAB
  3. LANTUS [Suspect]
     Dosage: AT 10 :00 PM DOSE:27 UNIT(S)
     Route: 058
  4. INSULIN [Concomitant]
  5. POTASSIUM CHLORIDE [Concomitant]
     Dates: start: 20110316
  6. LANTUS [Suspect]
     Dosage: DOSE:30 UNIT(S)
     Route: 058
     Dates: start: 20110316
  7. LISINOPRIL [Concomitant]
     Indication: BLOOD PRESSURE
     Dosage: 1 TAB
     Dates: start: 20110316
  8. NOVOLOG [Concomitant]
     Dosage: THREE TIMES A DAY BEFORE MEALS AT 8:30 AM, 1:00 PM AND 6:00 PM DOSE:8 UNIT(S)
  9. METOPROLOL TARTRATE [Concomitant]
     Indication: BLOOD PRESSURE
     Dosage: 1 TABLET AT 8:30 PM
     Dates: start: 20110316
  10. ASPIRIN [Concomitant]
     Dates: start: 20110316
  11. HYDRALAZINE HCL [Concomitant]
     Indication: BLOOD PRESSURE
     Dosage: 1 TAB AT 8:30 PM
     Dates: start: 20110316
  12. LASIX [Concomitant]
     Indication: BLOOD PRESSURE
     Dosage: 1 TAB
     Dates: start: 20110316

REACTIONS (3)
  - SYNCOPE [None]
  - FALL [None]
  - HYPERTENSION [None]
